FAERS Safety Report 6599189-8 (Version None)
Quarter: 2010Q1

REPORT INFORMATION
  Report Type: 
  Country: None (occurrence: None)
  Receive Date: 20100224
  Receipt Date: 20100216
  Transmission Date: 20100710
  Serious: Yes (Death)
  Sender: FDA-Public Use
  Company Number: DE-B.I. PHARMACEUTICALS,INC./RIDGEFIELD-2010-DE-00115BY

PATIENT
  Sex: Female

DRUGS (27)
  1. BLIND (TELMISARTAN) [Suspect]
     Indication: RENAL FAILURE
     Dosage: 80 MG
     Route: 048
     Dates: start: 20091215
  2. BLIND (TELMISARTAN) [Suspect]
     Indication: DIALYSIS
  3. BLIND (TELMISARTAN) [Suspect]
     Indication: HYPERTENSION
  4. IOPIDINE [Concomitant]
     Indication: OCULAR HYPERTENSION
     Dosage: 2 ANZ
     Dates: start: 20040309, end: 20091227
  5. VEXOL [Concomitant]
     Indication: EYE INFLAMMATION
     Route: 065
     Dates: start: 20040101, end: 20091227
  6. PHOS-EX [Concomitant]
     Indication: HYPERPHOSPHATAEMIA
     Dosage: 2850 MG
     Route: 065
     Dates: start: 20090219, end: 20091227
  7. COSOPT AT [Concomitant]
     Indication: OCULAR HYPERTENSION
     Dosage: 2 ANZ
     Route: 065
     Dates: start: 20060126, end: 20091227
  8. PROTHAZIN [Concomitant]
     Indication: DRUG THERAPY
     Dosage: 20 MG
     Route: 065
     Dates: start: 20060817, end: 20091227
  9. TRAMADOLOR LONG [Concomitant]
     Indication: PAIN
     Dosage: 100 MG
     Route: 065
     Dates: start: 20060817, end: 20091227
  10. BELOC ZOK [Concomitant]
     Indication: HYPERTENSION
     Route: 065
     Dates: start: 20090804, end: 20091227
  11. NEPHROTRANS [Concomitant]
     Indication: METABOLIC ACIDOSIS
     Dosage: 2520 MG
     Route: 065
     Dates: start: 20080221, end: 20091227
  12. SIMVAHEXAL [Concomitant]
     Indication: HYPERCHOLESTEROLAEMIA
     Dosage: 40 MG
     Route: 065
     Dates: start: 20070605, end: 20091227
  13. XALATAN [Concomitant]
     Indication: INTRAOCULAR PRESSURE INCREASED
     Route: 065
     Dates: start: 20070607, end: 20091227
  14. CPS [Concomitant]
     Indication: HYPOKALAEMIA
     Dosage: 1 RT
     Route: 065
     Dates: start: 20090604, end: 20091227
  15. DECOSTRIOL [Concomitant]
     Indication: VITAMIN D DEFICIENCY
     Dosage: 0.25 MG
     Route: 065
     Dates: start: 20090219, end: 20091227
  16. PANTOPRAZOL [Concomitant]
     Indication: REFLUX OESOPHAGITIS
     Dosage: 40 MG
     Route: 065
     Dates: start: 20090609, end: 20091227
  17. FALITHROM [Concomitant]
     Indication: ISCHAEMIC HEART DISEASE PROPHYLAXIS
     Route: 065
     Dates: start: 20090804, end: 20091227
  18. FALITHROM [Concomitant]
     Indication: TACHYARRHYTHMIA
  19. FALITHROM [Concomitant]
     Indication: ATRIAL FIBRILLATION
  20. DIGITOXIN INJ [Concomitant]
     Indication: TACHYARRHYTHMIA
     Dosage: 0.07 MG
     Route: 065
     Dates: start: 20090804, end: 20091227
  21. NOVAMINSULFON [Concomitant]
     Indication: PAIN
     Route: 065
     Dates: start: 20090818, end: 20091227
  22. ACTRAPID NOVO [Concomitant]
     Indication: DIABETES MELLITUS
     Route: 065
     Dates: start: 20090903, end: 20091227
  23. VITARENAL [Concomitant]
     Indication: VITAMIN C DEFICIENCY
     Dosage: 1 RT
     Route: 065
     Dates: start: 20090903, end: 20091227
  24. SILAPON [Concomitant]
     Indication: NEPHROGENIC ANAEMIA
     Dosage: 2571.4 U
     Route: 065
     Dates: start: 20030110, end: 20091227
  25. VITAMIN C [Concomitant]
     Indication: VITAMIN C DEFICIENCY
     Dosage: 214.3 MG
     Route: 065
     Dates: start: 20070523, end: 20091227
  26. NEFROCARNIT [Concomitant]
     Indication: CARNITINE DEFICIENCY
     Dosage: 0.43 G
     Route: 065
     Dates: start: 20070823, end: 20091227
  27. LANTUS [Concomitant]
     Indication: DIABETES MELLITUS
     Dosage: 18 U
     Route: 065
     Dates: start: 20091105, end: 20091227

REACTIONS (2)
  - DYSPNOEA [None]
  - GENERAL PHYSICAL HEALTH DETERIORATION [None]
